FAERS Safety Report 9231001 (Version 1)
Quarter: 2013Q2

REPORT INFORMATION
  Report Type: Report from Study
  Country: CA (occurrence: CA)
  Receive Date: 20130415
  Receipt Date: 20130415
  Transmission Date: 20140414
  Serious: Yes (Other)
  Sender: FDA-Public Use
  Company Number: CA-JNJFOC-20130403255

PATIENT
  Sex: Female
  Weight: 120.2 kg

DRUGS (1)
  1. REMICADE [Suspect]
     Indication: TAKAYASU^S ARTERITIS
     Route: 042
     Dates: end: 20120326

REACTIONS (2)
  - Adverse event [Unknown]
  - Off label use [Unknown]
